FAERS Safety Report 23952758 (Version 2)
Quarter: 2024Q3

REPORT INFORMATION
  Report Type: Spontaneous
  Country: US (occurrence: US)
  Receive Date: 20240607
  Receipt Date: 20240806
  Transmission Date: 20241016
  Serious: No
  Sender: GE HEALTHCARE
  Company Number: US-GE HEALTHCARE-2024CSU005525

PATIENT
  Age: 45 Year
  Sex: Female

DRUGS (1)
  1. CERIANNA [Suspect]
     Active Substance: FLUOROESTRADIOL F-18
     Indication: Diagnostic procedure
     Dosage: 185 MBQ, TOTAL
     Route: 065
     Dates: start: 20240514, end: 20240514

REACTIONS (1)
  - False negative investigation result [Recovered/Resolved]

NARRATIVE: CASE EVENT DATE: 20240514
